FAERS Safety Report 8288068-6 (Version None)
Quarter: 2012Q2

REPORT INFORMATION
  Report Type: 
  Country: None (occurrence: None)
  Receive Date: 20120416
  Receipt Date: 20120406
  Transmission Date: 20120825
  Serious: Yes (Other)
  Sender: FDA-Public Use
  Company Number: US-BAYER-2012-035081

PATIENT

DRUGS (5)
  1. PANCRELIPASE [Concomitant]
  2. ACETAMINOPHEN [Concomitant]
     Indication: ANALGESIC THERAPY
  3. MOTRIN [Concomitant]
     Indication: ANALGESIC THERAPY
  4. IBUPROFEN (ADVIL) [Concomitant]
     Indication: ANALGESIC THERAPY
  5. ALEVE (CAPLET) [Suspect]
     Indication: ANALGESIC THERAPY
     Route: 048

REACTIONS (1)
  - PAIN [None]
